FAERS Safety Report 6575276-5 (Version None)
Quarter: 2010Q1

REPORT INFORMATION
  Report Type: 
  Country: None (occurrence: None)
  Receive Date: 20100209
  Receipt Date: 20100202
  Transmission Date: 20100710
  Serious: Yes (Other)
  Sender: FDA-Public Use
  Company Number: US-ROCHE-666433

PATIENT
  Sex: Female

DRUGS (4)
  1. PEGASYS [Suspect]
     Indication: HEPATITIS C
     Dosage: FORM: PFS
     Route: 065
     Dates: start: 20091016
  2. PEGASYS [Suspect]
     Dosage: PATIENT IN WEEK 16 OF THERAPY
     Route: 065
     Dates: start: 20091221
  3. RIBAVIRIN [Suspect]
     Indication: HEPATITIS C
     Dosage: DIVIDED DOSES,
     Route: 048
     Dates: start: 20091016
  4. RIBAVIRIN [Suspect]
     Dosage: DIVIDED DOSES; PATIENT IN WEEK 16 OF THERAPY
     Route: 048
     Dates: start: 20091221

REACTIONS (8)
  - ARTHRALGIA [None]
  - DYSPNOEA [None]
  - FATIGUE [None]
  - GLAUCOMA [None]
  - HAEMOGLOBIN ABNORMAL [None]
  - PHOTOSENSITIVITY REACTION [None]
  - RED BLOOD CELL COUNT DECREASED [None]
  - WHITE BLOOD CELL COUNT DECREASED [None]
